FAERS Safety Report 18391723 (Version 1)
Quarter: 2020Q4

REPORT INFORMATION
  Report Type: Spontaneous
  Country: US (occurrence: US)
  Receive Date: 20201015
  Receipt Date: 20201015
  Transmission Date: 20210114
  Serious: Yes (Hospitalization)
  Sender: FDA-Public Use
  Company Number: None

PATIENT
  Sex: Male
  Weight: 114.3 kg

DRUGS (1)
  1. CYTARABINE (63878) [Suspect]
     Active Substance: CYTARABINE

REACTIONS (6)
  - Febrile neutropenia [None]
  - White blood cell count decreased [None]
  - Thrombocytopenia [None]
  - Haemoglobin decreased [None]
  - Cough [None]
  - Escherichia infection [None]

NARRATIVE: CASE EVENT DATE: 20200928
